FAERS Safety Report 7933294-6 (Version None)
Quarter: 2011Q4

REPORT INFORMATION
  Report Type: 
  Country: None (occurrence: None)
  Receive Date: 20111118
  Receipt Date: 20111110
  Transmission Date: 20120403
  Serious: Yes (Hospitalization)
  Sender: FDA-Public Use
  Company Number: 2011SGN00208

PATIENT
  Age: 33 Year
  Sex: Female
  Weight: 48.1 kg

DRUGS (14)
  1. NUSOL (BISMUTH HYDROXIDE, BISMUTH SUBGALLATE, BORIC ACID, MYROXYLON BA [Concomitant]
  2. DACARBAZINE [Suspect]
     Dosage: 375 MG/M2, QL4D, INTRAVENOUS
     Route: 042
     Dates: start: 20110408, end: 20110909
  3. ZOFRAN [Concomitant]
  4. MAGNESIUM PLUS (MAGNESIUM) [Concomitant]
  5. GRANISETRON (GRANISETRON HYDROCHLORIDE) [Concomitant]
  6. TRAMADOL HCL [Concomitant]
  7. BRENTUXIMAB VEDOTIN (BRENTUXIMAB VEDOTIN) INJECTION [Suspect]
     Dosage: 1.2 MG/KG, Q14D, INTRAVENOUS
     Route: 042
     Dates: start: 20110408, end: 20110909
  8. BLEOMYCIN SULFATE [Suspect]
     Dosage: 10 UNITS/M2, Q14D, INTRAVENOUS
     Route: 042
     Dates: start: 20110408, end: 20110826
  9. DOXORUBICIN HCL [Suspect]
     Dosage: 25 MG/M2,  Q14D, INTRAVENOUS
     Route: 042
     Dates: start: 20110408, end: 20110909
  10. LACTULOSE [Concomitant]
  11. PHENERGAN [Concomitant]
  12. VINBLASTINE SULFATE [Suspect]
     Dosage: 6 MG/M2, G14D, INTRAVENOUS
     Route: 042
     Dates: start: 20110408, end: 20110909
  13. ATIVAN [Concomitant]
  14. PROTEIN SUPPLEMENTS [Concomitant]

REACTIONS (15)
  - PULMONARY TOXICITY [None]
  - TACHYCARDIA [None]
  - PNEUMOTHORAX [None]
  - CEREBRAL HAEMORRHAGE [None]
  - PNEUMOMEDIASTINUM [None]
  - POSTERIOR REVERSIBLE ENCEPHALOPATHY SYNDROME [None]
  - NEUTROPHIL PERCENTAGE INCREASED [None]
  - ORTHOSTATIC HYPOTENSION [None]
  - BODY TEMPERATURE INCREASED [None]
  - BLOOD LACTIC ACID INCREASED [None]
  - BRAIN DEATH [None]
  - SIMPLEX VIRUS TEST POSITIVE [None]
  - SUBCUTANEOUS EMPHYSEMA [None]
  - PERICARDIAL EFFUSION [None]
  - ACUTE RESPIRATORY FAILURE [None]
